FAERS Safety Report 6084047-8 (Version None)
Quarter: 2009Q1

REPORT INFORMATION
  Report Type: 
  Country: None (occurrence: None)
  Receive Date: 20090219
  Receipt Date: 20090212
  Transmission Date: 20090719
  Serious: Yes (Death, Hospitalization)
  Sender: FDA-Public Use
  Company Number: JP-ASTRAZENECA-2008SE04632

PATIENT
  Age: 86 Year
  Sex: Female
  Weight: 45 kg

DRUGS (15)
  1. BLOPRESS [Suspect]
     Indication: CARDIAC FAILURE CHRONIC
     Route: 048
     Dates: start: 20070711, end: 20070927
  2. DIAZEPAM [Concomitant]
     Indication: ANXIETY DISORDER
     Route: 048
     Dates: start: 20070127, end: 20070927
  3. ACARDI [Concomitant]
     Indication: CARDIAC FAILURE CHRONIC
     Route: 048
     Dates: start: 20070127, end: 20070927
  4. DIGOSIN [Concomitant]
     Indication: CARDIAC FAILURE CHRONIC
     Route: 048
     Dates: start: 20060322, end: 20070927
  5. LASIX [Concomitant]
     Indication: CARDIAC FAILURE CHRONIC
     Route: 048
     Dates: start: 20060605, end: 20070927
  6. ASPIRIN [Concomitant]
     Indication: ATRIAL FIBRILLATION
     Route: 048
     Dates: start: 20060605, end: 20070927
  7. GASTER D [Concomitant]
     Indication: PROPHYLAXIS
     Route: 048
     Dates: start: 20060605, end: 20070927
  8. MIYA-BM [Concomitant]
     Indication: CONSTIPATION
     Route: 048
     Dates: start: 20070317, end: 20070927
  9. DEPAS [Concomitant]
     Indication: ANXIETY DISORDER
     Route: 048
     Dates: start: 20070127, end: 20070927
  10. SENNARIDE [Concomitant]
     Indication: CONSTIPATION
     Route: 048
     Dates: start: 20061109, end: 20070927
  11. CYANOCOBALAMIN [Concomitant]
     Indication: PROPHYLAXIS
     Route: 042
     Dates: start: 20030724, end: 20070918
  12. SALSOROITIN S [Concomitant]
     Indication: OSTEOARTHRITIS
     Route: 042
     Dates: start: 20060828, end: 20070918
  13. NEO VITACAIN [Concomitant]
     Indication: OSTEOARTHRITIS
     Route: 042
     Dates: start: 20040828, end: 20070918
  14. NABUTOPIN [Concomitant]
     Indication: OSTEOARTHRITIS
     Route: 042
     Dates: start: 20030710, end: 20070918
  15. MENAMIN [Concomitant]
     Indication: OSTEOARTHRITIS
     Route: 042
     Dates: start: 20020425, end: 20070918

REACTIONS (2)
  - CEREBRAL INFARCTION [None]
  - DYSARTHRIA [None]
